FAERS Safety Report 6907976-9 (Version None)
Quarter: 2010Q3

REPORT INFORMATION
  Report Type: 
  Country: None (occurrence: None)
  Receive Date: 20100805
  Receipt Date: 20100802
  Transmission Date: 20110219
  Serious: Yes (Death)
  Sender: FDA-Public Use
  Company Number: PHHY2010US50772

PATIENT
  Sex: Male

DRUGS (2)
  1. FANAPT [Suspect]
     Dosage: UNK, BID
     Route: 048
  2. QUETIAPINE [Concomitant]
     Dosage: UNK

REACTIONS (1)
  - DEATH [None]
